FAERS Safety Report 7801176-6 (Version None)
Quarter: 2011Q4

REPORT INFORMATION
  Report Type: 
  Country: None (occurrence: None)
  Receive Date: 20111007
  Receipt Date: 20110929
  Transmission Date: 20120403
  Serious: No
  Sender: FDA-Public Use
  Company Number: US-BIOGENIDEC-2011BI037662

PATIENT
  Age: 32 Year
  Sex: Female

DRUGS (5)
  1. TYSABRI [Suspect]
     Indication: MULTIPLE SCLEROSIS
     Route: 042
     Dates: start: 20090924, end: 20110811
  2. TYSABRI [Suspect]
     Route: 042
     Dates: start: 20070516, end: 20080404
  3. AVONEX [Concomitant]
     Route: 030
  4. TYSABRI [Suspect]
     Route: 042
     Dates: start: 20050207, end: 20050208
  5. AVONEX [Concomitant]
     Indication: MULTIPLE SCLEROSIS
     Route: 030

REACTIONS (1)
  - GENERAL SYMPTOM [None]
